FAERS Safety Report 12594543 (Version 1)
Quarter: 2016Q3

REPORT INFORMATION
  Report Type: Spontaneous
  Country: DK (occurrence: DK)
  Receive Date: 20160726
  Receipt Date: 20160726
  Transmission Date: 20161109
  Serious: Yes (Hospitalization)
  Sender: FDA-Public Use
  Company Number: DK-WATSON-2016-16195

PATIENT
  Age: 33 Year
  Sex: Male

DRUGS (7)
  1. TAZOCIN [Concomitant]
     Active Substance: PIPERACILLIN SODIUM\TAZOBACTAM SODIUM
     Indication: PRODUCT USED FOR UNKNOWN INDICATION
     Dosage: UNK
     Route: 065
  2. STESOLID [Suspect]
     Active Substance: DIAZEPAM
     Indication: DRUG WITHDRAWAL SYNDROME
     Dosage: UNK; DOSE:? (LARGE AMOUNTS STESOLID (} 1000 MG))
     Route: 042
     Dates: start: 201606
  3. CIPROFLOXACIN. [Concomitant]
     Active Substance: CIPROFLOXACIN
     Indication: PRODUCT USED FOR UNKNOWN INDICATION
     Dosage: UNK
     Route: 065
  4. PROPOFOL. [Concomitant]
     Active Substance: PROPOFOL
     Indication: PRODUCT USED FOR UNKNOWN INDICATION
     Dosage: UNK; 50 MG/H
     Route: 065
  5. MIDAZOLAM HAMELN [Suspect]
     Active Substance: MIDAZOLAM HYDROCHLORIDE
     Indication: DRUG WITHDRAWAL SYNDROME
     Dosage: UNK; DOSIS: 200 MG/H.
     Route: 042
     Dates: start: 20160617
  6. ASACOL [Concomitant]
     Active Substance: MESALAMINE
     Indication: PRODUCT USED FOR UNKNOWN INDICATION
     Dosage: UNK
     Route: 065
  7. METRONIDAZOL                       /00012501/ [Concomitant]
     Active Substance: METRONIDAZOLE
     Indication: PRODUCT USED FOR UNKNOWN INDICATION
     Dosage: UNK
     Route: 065

REACTIONS (3)
  - Endotracheal intubation [Unknown]
  - Pyrexia [Recovering/Resolving]
  - Pneumonia aspiration [Recovering/Resolving]

NARRATIVE: CASE EVENT DATE: 20160619
